FAERS Safety Report 8400486-1 (Version None)
Quarter: 2012Q2

REPORT INFORMATION
  Report Type: 
  Country: None (occurrence: None)
  Receive Date: 20120531
  Receipt Date: 20120521
  Transmission Date: 20120825
  Serious: Yes (Death)
  Sender: FDA-Public Use
  Company Number: JP-AMGEN-JPNCT2012033765

PATIENT
  Age: 74 Year
  Sex: Male
  Weight: 64 kg

DRUGS (32)
  1. ROMIPLOSTIM - KHK [Suspect]
     Dosage: 6.3 MG/KG, UNK
     Route: 058
     Dates: start: 20110629, end: 20110629
  2. ROMIPLOSTIM - KHK [Suspect]
     Dosage: 6.3 MG/KG, UNK
     Route: 058
     Dates: start: 20111102, end: 20111102
  3. ROMIPLOSTIM - KHK [Suspect]
     Dosage: 6.3 MG/KG, UNK
     Route: 058
     Dates: start: 20111109, end: 20111109
  4. NORVASC [Concomitant]
     Indication: HYPERTENSION
     Dosage: UNK
     Route: 048
  5. ROMIPLOSTIM - KHK [Suspect]
     Dosage: 6.3 MG/KG, UNK
     Route: 058
     Dates: start: 20110831, end: 20110831
  6. ROMIPLOSTIM - KHK [Suspect]
     Dosage: 6.3 MG/KG, UNK
     Route: 058
     Dates: start: 20111116, end: 20111116
  7. ROMIPLOSTIM - KHK [Suspect]
     Dosage: 6.3 MG/KG, UNK
     Route: 058
     Dates: start: 20111207, end: 20111207
  8. ROMIPLOSTIM - KHK [Suspect]
     Dosage: 6.3 MG/KG, UNK
     Route: 058
     Dates: start: 20111214, end: 20111214
  9. ROMIPLOSTIM - KHK [Suspect]
     Dosage: 6.3 MG/KG, UNK
     Route: 058
     Dates: start: 20110622, end: 20110622
  10. ROMIPLOSTIM - KHK [Suspect]
     Dosage: 6.3 MG/KG, UNK
     Route: 058
     Dates: start: 20110720, end: 20110720
  11. ROMIPLOSTIM - KHK [Suspect]
     Dosage: 6.3 MG/KG, UNK
     Route: 058
     Dates: start: 20111005, end: 20111005
  12. ROMIPLOSTIM - KHK [Suspect]
     Dosage: 6.3 MG/KG, UNK
     Route: 058
     Dates: start: 20111019, end: 20111019
  13. ROMIPLOSTIM - KHK [Suspect]
     Indication: IDIOPATHIC THROMBOCYTOPENIC PURPURA
     Dosage: 9.1 MG/KG, UNK
     Route: 058
     Dates: start: 20110615, end: 20110615
  14. ROMIPLOSTIM - KHK [Suspect]
     Dosage: 6.3 MG/KG, UNK
     Route: 058
     Dates: start: 20110810, end: 20110810
  15. ROMIPLOSTIM - KHK [Suspect]
     Dosage: 6.3 MG/KG, UNK
     Route: 058
     Dates: start: 20111012, end: 20111012
  16. ROMIPLOSTIM - KHK [Suspect]
     Dosage: 6.3 MG/KG, UNK
     Route: 058
     Dates: start: 20110713, end: 20110713
  17. ROMIPLOSTIM - KHK [Suspect]
     Dosage: 6.3 MG/KG, UNK
     Route: 058
     Dates: start: 20110824, end: 20110824
  18. ROMIPLOSTIM - KHK [Suspect]
     Dosage: 6.3 MG/KG, UNK
     Route: 058
     Dates: start: 20110928, end: 20110928
  19. ROMIPLOSTIM - KHK [Suspect]
     Dosage: 6.3 MG/KG, UNK
     Route: 058
     Dates: start: 20111124, end: 20111124
  20. TEGRETOL [Concomitant]
     Indication: PROPHYLAXIS
     Dosage: UNK UNK, UNK
     Route: 048
  21. ROMIPLOSTIM - KHK [Suspect]
     Dosage: 6.3 MG/KG, UNK
     Route: 058
     Dates: start: 20110706, end: 20110706
  22. ROMIPLOSTIM - KHK [Suspect]
     Dosage: 6.3 MG/KG, UNK
     Route: 058
     Dates: start: 20110803, end: 20110803
  23. ROMIPLOSTIM - KHK [Suspect]
     Dosage: 6.3 MG/KG, UNK
     Route: 058
     Dates: start: 20111026, end: 20111026
  24. ROMIPLOSTIM - KHK [Suspect]
     Dosage: 6.3 MG/KG, UNK
     Route: 058
     Dates: start: 20111130, end: 20111130
  25. DEPAS [Concomitant]
     Indication: INSOMNIA
     Dosage: UNCERTAINTY
     Route: 048
  26. ALLOPURINOL [Concomitant]
     Indication: HYPERURICAEMIA
     Dosage: UNK
     Route: 048
  27. ROMIPLOSTIM - KHK [Suspect]
     Dosage: 6.3 MG/KG, UNK
     Route: 058
     Dates: start: 20110817, end: 20110817
  28. ROMIPLOSTIM - KHK [Suspect]
     Dosage: 6.3 MG/KG, UNK
     Route: 058
     Dates: start: 20110907, end: 20110907
  29. ROMIPLOSTIM - KHK [Suspect]
     Dosage: 6.3 MG/KG, UNK
     Route: 058
     Dates: start: 20110921, end: 20110921
  30. ROMIPLOSTIM - KHK [Suspect]
     Dosage: 6.3 MG/KG, UNK
     Route: 058
     Dates: start: 20110727, end: 20110727
  31. ROMIPLOSTIM - KHK [Suspect]
     Dosage: 6.3 MG/KG, UNK
     Route: 058
     Dates: start: 20110914, end: 20110914
  32. LIPITOR [Concomitant]
     Indication: HYPERLIPIDAEMIA
     Dosage: UNK
     Route: 048

REACTIONS (4)
  - SUDDEN DEATH [None]
  - OVERDOSE [None]
  - DIZZINESS POSTURAL [None]
  - NASAL VESTIBULITIS [None]
